FAERS Safety Report 14328829 (Version 1)
Quarter: 2017Q4

REPORT INFORMATION
  Report Type: Spontaneous
  Country: US (occurrence: US)
  Receive Date: 20171227
  Receipt Date: 20171227
  Transmission Date: 20180321
  Serious: Yes (Hospitalization)
  Sender: FDA-Public Use
  Company Number: US-ELI_LILLY_AND_COMPANY-US201712010472

PATIENT
  Sex: Female

DRUGS (3)
  1. HUMALOG [Suspect]
     Active Substance: INSULIN LISPRO
     Dosage: SLIDING SCALE USED WHEN GLUCOSE MORE THAN 150
     Route: 065
     Dates: start: 201708
  2. HUMALOG [Suspect]
     Active Substance: INSULIN LISPRO
     Indication: TYPE 2 DIABETES MELLITUS
     Dosage: SLIDING SCALE USED WHEN GLUCOSE MORE THAN 150
     Route: 065
     Dates: start: 201708
  3. HUMALOG [Suspect]
     Active Substance: INSULIN LISPRO
     Dosage: SLIDING SCALE USED WHEN GLUCOSE MORE THAN 150
     Route: 065
     Dates: start: 201708

REACTIONS (3)
  - Post procedural complication [Recovering/Resolving]
  - Dysarthria [Unknown]
  - Pain [Recovering/Resolving]

NARRATIVE: CASE EVENT DATE: 20171212
